FAERS Safety Report 9243024 (Version 1)
Quarter: 2013Q2

REPORT INFORMATION
  Report Type: Spontaneous
  Country: US (occurrence: US)
  Receive Date: 20130419
  Receipt Date: 20130419
  Transmission Date: 20140414
  Serious: No
  Sender: FDA-Public Use
  Company Number: US-009507513-1304USA010646

PATIENT
  Sex: Female

DRUGS (1)
  1. CLARITIN [Suspect]
     Indication: URTICARIA
     Dosage: UNK, UNKNOWN
     Route: 048

REACTIONS (2)
  - Drug effect decreased [Unknown]
  - Off label use [Unknown]
